FAERS Safety Report 9931695 (Version 3)
Quarter: 2014Q1

REPORT INFORMATION
  Report Type: Report from Study
  Country: BR (occurrence: BR)
  Receive Date: 20140228
  Receipt Date: 20140314
  Transmission Date: 20141002
  Serious: Yes (Other)
  Sender: FDA-Public Use
  Company Number: BR-AMGEN-BRACT2011026959

PATIENT
  Age: 46 Year
  Sex: Female
  Weight: 75 kg

DRUGS (6)
  1. ETANERCEPT [Suspect]
     Indication: RHEUMATOID ARTHRITIS
     Dosage: 50 MG, QWK
     Route: 058
     Dates: end: 20110518
  2. CHLOROQUINE PHOSPHATE [Concomitant]
     Dosage: 200 MG, UNK
  3. PIROXICAM [Concomitant]
     Dosage: 200 MG, UNK
  4. CYCLOBENZAPRINE [Concomitant]
     Dosage: 10 MG, UNK
  5. FAMOTIDINE [Concomitant]
     Dosage: 20 MG, 1X/DAY
     Dates: start: 2008
  6. CAPTOPRIL [Concomitant]
     Dosage: 25 MG, 1X/DAY
     Dates: start: 201104

REACTIONS (3)
  - Wound [Unknown]
  - Purulent discharge [Unknown]
  - Skin wound [Unknown]
